FAERS Safety Report 12791273 (Version 1)
Quarter: 2016Q3

REPORT INFORMATION
  Report Type: Report from Study
  Country: PL (occurrence: PL)
  Receive Date: 20160929
  Receipt Date: 20160929
  Transmission Date: 20161109
  Serious: Yes (Other)
  Sender: FDA-Public Use
  Company Number: PHHY2016PL132860

PATIENT

DRUGS (2)
  1. DICLAC [Suspect]
     Active Substance: DICLOFENAC
     Indication: MIGRAINE
  2. DICLAC [Suspect]
     Active Substance: DICLOFENAC
     Indication: HEADACHE
     Route: 065

REACTIONS (2)
  - Urine output decreased [Unknown]
  - Oedema peripheral [Unknown]
